FAERS Safety Report 17600402 (Version 1)
Quarter: 2020Q1

REPORT INFORMATION
  Report Type: Spontaneous
  Country: US (occurrence: US)
  Receive Date: 20200330
  Receipt Date: 20200330
  Transmission Date: 20200409
  Serious: Yes (Hospitalization, Other)
  Sender: FDA-Public Use
  Company Number: US-PFIZER INC-2020126901

PATIENT
  Age: 33 Year
  Sex: Female
  Weight: 23.39 kg

DRUGS (3)
  1. BREO ELLIPTA [Concomitant]
     Active Substance: FLUTICASONE FUROATE\VILANTEROL TRIFENATATE
     Dosage: UNK
  2. RASUVO [Suspect]
     Active Substance: METHOTREXATE SODIUM
     Indication: RHEUMATOID ARTHRITIS
     Dosage: 20 MG, SINGLE (ONCE IN LEFT DELTOID)
     Route: 030
     Dates: start: 20191118, end: 20191118
  3. SOLU-MEDROL [Suspect]
     Active Substance: METHYLPREDNISOLONE SODIUM SUCCINATE
     Dosage: 60 MG, 4X/DAY(EVERY 6 HOURS)
     Route: 042
     Dates: start: 2019

REACTIONS (28)
  - Diarrhoea [Recovered/Resolved]
  - Insomnia [Not Recovered/Not Resolved]
  - Leukocytosis [Unknown]
  - Rash [Unknown]
  - Food intolerance [Unknown]
  - Joint swelling [Recovered/Resolved]
  - Accidental overdose [Unknown]
  - Sinus tachycardia [Unknown]
  - Malaise [Unknown]
  - Fall [Unknown]
  - Cystitis escherichia [Unknown]
  - Pain [Unknown]
  - Peripheral swelling [Recovered/Resolved]
  - Gastric ulcer [Not Recovered/Not Resolved]
  - Colitis [Not Recovered/Not Resolved]
  - Duodenitis [Unknown]
  - Pyrexia [Not Recovered/Not Resolved]
  - Vomiting [Recovered/Resolved]
  - Henoch-Schonlein purpura [Unknown]
  - Haematuria [Unknown]
  - Arthralgia [Recovered/Resolved]
  - Inflammatory bowel disease [Unknown]
  - Anaemia [Unknown]
  - Hyperglycaemia [Unknown]
  - Weight decreased [Unknown]
  - Nausea [Recovered/Resolved]
  - Hypoaesthesia [Recovered/Resolved]
  - Lactic acidosis [Unknown]

NARRATIVE: CASE EVENT DATE: 2019
